FAERS Safety Report 10286268 (Version 1)
Quarter: 2014Q3

REPORT INFORMATION
  Report Type: Spontaneous
  Country: US (occurrence: US)
  Receive Date: 20140709
  Receipt Date: 20140709
  Transmission Date: 20150326
  Serious: Yes (Other)
  Sender: FDA-Public Use
  Company Number: US-NAPPMUNDI-USA-2014-0115305

PATIENT
  Age: 41 Year
  Sex: Male

DRUGS (2)
  1. OXYCODONE HYDROCHLORIDE (SIMILAR TO NDA 22-272) [Suspect]
     Active Substance: OXYCODONE HYDROCHLORIDE
     Indication: SUICIDE ATTEMPT
     Dosage: UNKNOWN
  2. LIQUID-PLUMBR [Suspect]
     Active Substance: SODIUM HYDROXIDE\SODIUM HYPOCHLORITE
     Indication: SUICIDE ATTEMPT
     Dosage: UNKNOWN

REACTIONS (2)
  - Suicide attempt [Unknown]
  - Intentional self-injury [None]
